FAERS Safety Report 21274747 (Version 1)
Quarter: 2022Q3

REPORT INFORMATION
  Report Type: Spontaneous
  Country: ES (occurrence: ES)
  Receive Date: 20220831
  Receipt Date: 20220831
  Transmission Date: 20221027
  Serious: Yes (Hospitalization, Other)
  Sender: FDA-Public Use
  Company Number: None

PATIENT
  Age: 63 Year
  Sex: Male

DRUGS (6)
  1. SPIRONOLACTONE [Suspect]
     Active Substance: SPIRONOLACTONE
     Indication: Ascites
     Dosage: 100 MG, DAILY
     Route: 048
     Dates: start: 20210529, end: 20210824
  2. FUROSEMIDE [Suspect]
     Active Substance: FUROSEMIDE
     Indication: Ascites
     Dosage: 40 MG
     Route: 048
     Dates: start: 20210409, end: 20210824
  3. PROPRANOLOL HYDROCHLORIDE [Concomitant]
     Active Substance: PROPRANOLOL HYDROCHLORIDE
     Indication: Varices oesophageal
     Route: 048
     Dates: start: 20210804
  4. RAMIPRIL NORMON [Concomitant]
     Indication: Hypertension
     Route: 048
     Dates: start: 20190117
  5. OMEPRAZOL MYLAN [OMEPRAZOLE SODIUM] [Concomitant]
     Indication: Alcohol abuse
     Route: 048
     Dates: start: 20200814
  6. AMLODIPINE BESYLATE [Concomitant]
     Active Substance: AMLODIPINE BESYLATE
     Indication: Hypertension
     Route: 048
     Dates: start: 20190116

REACTIONS (1)
  - Syncope [Recovered/Resolved]

NARRATIVE: CASE EVENT DATE: 20210824
